FAERS Safety Report 9470071 (Version 1)
Quarter: 2013Q3

REPORT INFORMATION
  Report Type: Spontaneous
  Country: US (occurrence: US)
  Receive Date: 20130822
  Receipt Date: 20130822
  Transmission Date: 20140515
  Serious: Yes (Other)
  Sender: FDA-Public Use
  Company Number: US-COVIDIEN/TYCO HEALTHCARE/MALLINCKRODT-T201304149

PATIENT
  Age: 46 Year
  Sex: Female

DRUGS (1)
  1. FENTANYL TRANSDERMAL SYSTEM [Suspect]
     Indication: PAIN
     Dosage: 25 MCG/HR,  Q 72 HOURS
     Route: 062
     Dates: start: 20130411

REACTIONS (2)
  - Loss of consciousness [Recovered/Resolved]
  - Product adhesion issue [Unknown]
